FAERS Safety Report 8797578 (Version 2)
Quarter: 2012Q4

REPORT INFORMATION
  Report Type: 
  Country: FR (occurrence: FR)
  Receive Date: 20120920
  Receipt Date: 20120928
  Transmission Date: 20130627
  Serious: Yes (Hospitalization)
  Sender: FDA-Public Use
  Company Number: FR-JNJFOC-20120906472

PATIENT
  Age: 80 Year
  Sex: Male

DRUGS (3)
  1. REMINYL [Suspect]
     Indication: PRODUCT USED FOR UNKNOWN INDICATION
     Route: 048
     Dates: start: 2010, end: 20110911
  2. TAZOCILLINE [Concomitant]
     Indication: LUNG DISORDER
     Route: 065
  3. EBIXA [Concomitant]
     Route: 065

REACTIONS (4)
  - Lung disorder [Unknown]
  - Blood pressure increased [Unknown]
  - Atrial fibrillation [Recovered/Resolved]
  - Bradycardia [Recovered/Resolved]
